FAERS Safety Report 9450061 (Version 2)
Quarter: 2013Q4

REPORT INFORMATION
  Report Type: Report from Study
  Country: JP (occurrence: JP)
  Receive Date: 20130809
  Receipt Date: 20131119
  Transmission Date: 20140711
  Serious: No
  Sender: FDA-Public Use
  Company Number: JP-UCBSA-094666

PATIENT
  Age: 66 Year
  Sex: Female

DRUGS (2)
  1. CIMZIA [Suspect]
     Indication: RHEUMATOID ARTHRITIS
     Dosage: 200 MG SYRINGE
     Route: 058
     Dates: start: 20130523, end: 20130704
  2. METHOTREXATE [Concomitant]
     Dosage: DAILY DOSE: 8 MG
     Route: 048

REACTIONS (1)
  - Cold urticaria [Not Recovered/Not Resolved]
